FAERS Safety Report 9617523 (Version 1)
Quarter: 2013Q4

REPORT INFORMATION
  Report Type: Spontaneous
  Country: FR (occurrence: FR)
  Receive Date: 20131011
  Receipt Date: 20131011
  Transmission Date: 20140711
  Serious: Yes (Life-Threatening, Hospitalization)
  Sender: FDA-Public Use
  Company Number: FR-GLAXOSMITHKLINE-B0926806A

PATIENT
  Age: 69 Year
  Sex: Female

DRUGS (6)
  1. ARIXTRA [Suspect]
     Indication: CATHETER SITE PHLEBITIS
     Dosage: 7.5MG PER DAY
     Route: 058
     Dates: start: 20130917, end: 20130923
  2. CLAMOXYL IV [Concomitant]
     Indication: SEPSIS
     Dosage: 2G SIX TIMES PER DAY
     Route: 042
     Dates: start: 20130909, end: 20130927
  3. LEVOTHYROX [Concomitant]
     Route: 048
     Dates: start: 20130909, end: 20130923
  4. LEXOMIL [Concomitant]
     Dosage: 2MG PER DAY
     Route: 048
     Dates: start: 20130909, end: 20130923
  5. EUPANTOL [Concomitant]
     Route: 048
     Dates: start: 20130913, end: 20130923
  6. TRANSIPEG [Concomitant]
     Dosage: 5.9G PER DAY
     Route: 048
     Dates: start: 20130909, end: 20130923

REACTIONS (10)
  - Haemorrhagic stroke [Not Recovered/Not Resolved]
  - Hypothermia [Unknown]
  - Pupils unequal [Unknown]
  - Intracranial pressure increased [Unknown]
  - Headache [Unknown]
  - Vomiting [Unknown]
  - Haematoma [Unknown]
  - Brain oedema [Unknown]
  - Intraventricular haemorrhage [Unknown]
  - Neurological decompensation [Unknown]
